FAERS Safety Report 6250293-3 (Version None)
Quarter: 2009Q2

REPORT INFORMATION
  Report Type: 
  Country: None (occurrence: None)
  Receive Date: 20090630
  Receipt Date: 20090623
  Transmission Date: 20091009
  Serious: Yes (Hospitalization, Other)
  Sender: FDA-Public Use
  Company Number: US-TEVA-197162USA

PATIENT
  Sex: Male

DRUGS (1)
  1. CLARAVIS [Suspect]
     Indication: ACNE
     Route: 048
     Dates: start: 20090415, end: 20090515

REACTIONS (1)
  - PULMONARY EMBOLISM [None]
